FAERS Safety Report 6821979-4 (Version None)
Quarter: 2010Q3

REPORT INFORMATION
  Report Type: 
  Country: None (occurrence: None)
  Receive Date: 20100707
  Receipt Date: 20100707
  Transmission Date: 20110219
  Serious: Yes (Other)
  Sender: FDA-Public Use
  Company Number: None

PATIENT
  Sex: Female

DRUGS (1)
  1. TYSABRI [Suspect]
     Indication: MULTIPLE SCLEROSIS
     Dosage: 300MG EVERY 4 WEEKS INTRAVENOUS
     Route: 042
     Dates: start: 20080601

REACTIONS (3)
  - ARTHRALGIA [None]
  - INFUSION RELATED REACTION [None]
  - PRURITUS GENERALISED [None]
